FAERS Safety Report 9554712 (Version 2)
Quarter: 2013Q4

REPORT INFORMATION
  Report Type: Spontaneous
  Country: MY (occurrence: MY)
  Receive Date: 20130926
  Receipt Date: 20131010
  Transmission Date: 20140711
  Serious: Yes (Hospitalization)
  Sender: FDA-Public Use
  Company Number: MY-AMGEN-MYSSP2013067410

PATIENT
  Age: 60 Year
  Sex: Male

DRUGS (11)
  1. ENBREL [Suspect]
     Indication: RHEUMATOID ARTHRITIS
     Dosage: 50 MG, WEEKLY
     Route: 058
     Dates: start: 20110308, end: 20130917
  2. METHOTREXATE [Concomitant]
     Dosage: 20 MG, WEEKLY
  3. FOLATE [Concomitant]
     Dosage: 5 MG, 1X/DAY
  4. CALCIUM CARBONATE [Concomitant]
     Dosage: 500 MG, 1X/DAY
  5. ARCOXIA [Concomitant]
     Dosage: 90 MG, AS NEEDED
  6. AMLODIPINE BESILATE [Concomitant]
     Dosage: 10 MG, 1X/DAY
  7. METOPROLOL [Concomitant]
     Dosage: 100 MG, 2X/DAY
  8. ATORVASTATIN [Concomitant]
     Dosage: 40 MG, 1X/DAY AT NIGHT
  9. TELMISARTAN [Concomitant]
     Dosage: 40 MG, 1X/DAY
  10. KETOPROFEN [Concomitant]
     Dosage: UNK, LOCAL ANESTHETIC PATCH
     Route: 062
  11. METHYL SALICYLATE [Concomitant]
     Dosage: UNK, LOCAL ANESTHETIC OINTMENT
     Route: 061

REACTIONS (1)
  - Infection [Recovered/Resolved]
